FAERS Safety Report 8231460-6 (Version None)
Quarter: 2012Q1

REPORT INFORMATION
  Report Type: 
  Country: None (occurrence: None)
  Receive Date: 20120323
  Receipt Date: 20120321
  Transmission Date: 20120608
  Serious: Yes (Hospitalization)
  Sender: FDA-Public Use
  Company Number: US-B.I. PHARMACEUTICALS,INC./RIDGEFIELD-2012-BP-05359BP

PATIENT
  Sex: Female

DRUGS (13)
  1. COLACE [Concomitant]
     Indication: CONSTIPATION
     Route: 048
  2. RECLAST [Concomitant]
     Indication: OSTEOPOROSIS
     Route: 042
  3. NICODERM CQ [Concomitant]
     Indication: SMOKING CESSATION THERAPY
     Route: 061
  4. ZOLOFT [Concomitant]
     Indication: DEPRESSION
     Dosage: 200 MG
     Route: 048
  5. CLONAZEPAM [Concomitant]
     Indication: ANXIETY
     Dosage: 1.5 MG
     Route: 048
  6. CITRACAL [Concomitant]
     Indication: SUPPLEMENTATION THERAPY
     Route: 048
  7. TRAZODONE HCL [Concomitant]
     Indication: DEPRESSION
     Dosage: 150 MG
     Route: 048
  8. SPIRIVA [Suspect]
     Indication: CHRONIC OBSTRUCTIVE PULMONARY DISEASE
     Dosage: 18 MCG
     Route: 055
     Dates: start: 20100101
  9. MULTI-VITAMINS [Concomitant]
     Indication: SUPPLEMENTATION THERAPY
     Route: 048
  10. LISINOPRIL [Concomitant]
     Indication: HYPERTENSION
     Route: 048
  11. OMEPRAZOLE [Concomitant]
     Indication: GASTROOESOPHAGEAL REFLUX DISEASE
     Dosage: 40 MG
     Route: 048
  12. BUSPAR [Concomitant]
     Indication: ANXIETY
     Dosage: 30 MG
     Route: 048
  13. ARAVA [Concomitant]
     Indication: RHEUMATOID ARTHRITIS
     Dosage: 20 MG
     Route: 048

REACTIONS (1)
  - PNEUMONIA [None]
